FAERS Safety Report 7893729-4 (Version None)
Quarter: 2011Q4

REPORT INFORMATION
  Report Type: 
  Country: None (occurrence: None)
  Receive Date: 20111104
  Receipt Date: 20111031
  Transmission Date: 20120403
  Serious: Yes (Hospitalization)
  Sender: FDA-Public Use
  Company Number: DE-PFIZER INC-2011265417

PATIENT
  Age: 59 Year
  Sex: Male

DRUGS (7)
  1. SUMATRIPTAN SUCCINATE [Concomitant]
     Dosage: UNK
     Dates: start: 20100907
  2. VERALICH [Concomitant]
     Dosage: UNK
     Route: 048
     Dates: start: 20100907
  3. HYDROCORTISONE [Concomitant]
     Indication: BLOOD CORTICOTROPHIN DECREASED
     Dosage: UNK
     Dates: start: 20070627
  4. CONOXIA [Concomitant]
     Dosage: UNK
     Route: 055
     Dates: start: 20100907
  5. SOMATROPIN [Suspect]
     Indication: GROWTH HORMONE DEFICIENCY
     Dosage: 0.2 MG, 1X/DAY
     Dates: start: 20071029
  6. ROPINIROLE [Concomitant]
     Indication: PAIN
     Dosage: UNK
     Route: 048
     Dates: start: 20101129
  7. REQUIP [Concomitant]
     Dosage: UNK
     Route: 048
     Dates: start: 20101129

REACTIONS (1)
  - VERTIGO [None]
